FAERS Safety Report 22251066 (Version 1)
Quarter: 2023Q2

REPORT INFORMATION
  Report Type: Spontaneous
  Country: US (occurrence: US)
  Receive Date: 20230425
  Receipt Date: 20230425
  Transmission Date: 20230721
  Serious: Yes (Other)
  Sender: FDA-Public Use
  Company Number: US-002147023-NVSC2023US090066

PATIENT
  Sex: Female

DRUGS (1)
  1. XIIDRA [Suspect]
     Active Substance: LIFITEGRAST
     Indication: Product used for unknown indication
     Dosage: 5 %, (50 MG/ML) BID
     Route: 065

REACTIONS (4)
  - Cataract [Unknown]
  - Eye irritation [Unknown]
  - Lacrimation increased [Unknown]
  - Taste disorder [Unknown]
